FAERS Safety Report 13207767 (Version 3)
Quarter: 2017Q1

REPORT INFORMATION
  Report Type: Spontaneous
  Country: DE (occurrence: DE)
  Receive Date: 20170209
  Receipt Date: 20170227
  Transmission Date: 20170428
  Serious: No
  Sender: FDA-Public Use
  Company Number: DE-GILEAD-2017-0256778

PATIENT
  Age: 62 Year
  Sex: Male
  Weight: 72 kg

DRUGS (3)
  1. EVIPLERA [Suspect]
     Active Substance: EMTRICITABINE\RILPIVIRINE\TENOFOVIR DISOPROXIL FUMARATE
     Indication: HIV INFECTION
     Dosage: 200MG/25MG/245MG
     Route: 065
     Dates: start: 20140703, end: 20160504
  2. FLUCONAZOL 1A PHARMA [Concomitant]
  3. DECODERM TRI                       /01263901/ [Concomitant]

REACTIONS (7)
  - Gastric disorder [Unknown]
  - Sleep disorder [Recovering/Resolving]
  - Abnormal dreams [Recovered/Resolved]
  - Abdominal pain upper [Unknown]
  - CD4 lymphocytes decreased [Unknown]
  - Viral load increased [Recovered/Resolved]
  - Dyspepsia [Unknown]

NARRATIVE: CASE EVENT DATE: 20141013
